FAERS Safety Report 14460207 (Version 2)
Quarter: 2018Q1

REPORT INFORMATION
  Report Type: Spontaneous
  Country: GB (occurrence: GB)
  Receive Date: 20180130
  Receipt Date: 20180320
  Transmission Date: 20180509
  Serious: Yes (Other)
  Sender: FDA-Public Use
  Company Number: GB-MYLANLABS-2018M1005304

PATIENT
  Age: 15 Year
  Sex: Male

DRUGS (3)
  1. BACLOFEN. [Suspect]
     Active Substance: BACLOFEN
     Indication: MUSCLE SPASTICITY
     Dosage: 50 UG, QD
     Route: 048
  2. BACLOFEN. [Suspect]
     Active Substance: BACLOFEN
     Indication: DEMYELINATION
     Dosage: 90 ?G, QD
     Route: 037
  3. BACLOFEN. [Suspect]
     Active Substance: BACLOFEN
     Dosage: 185 UG, QD
     Route: 037

REACTIONS (4)
  - Dysphagia [Not Recovered/Not Resolved]
  - Apnoea [Recovered/Resolved]
  - Product use in unapproved indication [Unknown]
  - Lethargy [Unknown]
